FAERS Safety Report 9322464 (Version 1)
Quarter: 2013Q2

REPORT INFORMATION
  Report Type: Spontaneous
  Country: BR (occurrence: BR)
  Receive Date: 20130531
  Receipt Date: 20130531
  Transmission Date: 20140414
  Serious: Yes (Death)
  Sender: FDA-Public Use
  Company Number: BR-ACTELION-A-CH2013-83852

PATIENT
  Age: 8 Year
  Sex: Female

DRUGS (1)
  1. ZAVESCA [Suspect]
     Indication: TAY-SACHS DISEASE
     Dosage: UNK
     Route: 048
     Dates: start: 20111101

REACTIONS (4)
  - Tay-Sachs disease [Fatal]
  - Condition aggravated [Fatal]
  - Cardiac arrest [Fatal]
  - Respiratory disorder [Unknown]
